FAERS Safety Report 15213412 (Version 1)
Quarter: 2018Q3

REPORT INFORMATION
  Report Type: Spontaneous
  Country: FR (occurrence: FR)
  Receive Date: 20180730
  Receipt Date: 20180730
  Transmission Date: 20181010
  Serious: Yes (Life-Threatening)
  Sender: FDA-Public Use
  Company Number: FR-SUN PHARMACEUTICAL INDUSTRIES LTD-2018R1-179582

PATIENT
  Age: 28 Year
  Sex: Female

DRUGS (4)
  1. QUETIAPINE. [Suspect]
     Active Substance: QUETIAPINE
     Indication: PSYCHOTIC DISORDER
     Dosage: 600 MG, DAILY
     Route: 048
     Dates: start: 20180525, end: 20180607
  2. LOXAPAC [Suspect]
     Active Substance: LOXAPINE
     Indication: PSYCHOTIC DISORDER
     Dosage: 25 GTT, DAILY
     Route: 048
     Dates: start: 20180525, end: 20180607
  3. TERALITHE [Suspect]
     Active Substance: LITHIUM CARBONATE
     Indication: PSYCHOTIC DISORDER
     Dosage: 800 MG, DAILY
     Route: 048
     Dates: start: 20180523, end: 20180607
  4. RIVOTRIL [Concomitant]
     Active Substance: CLONAZEPAM
     Indication: PRODUCT USED FOR UNKNOWN INDICATION
     Dosage: 60 GTT, DAILY
     Route: 048
     Dates: start: 20180525, end: 20180613

REACTIONS (3)
  - Gastrointestinal necrosis [Recovered/Resolved with Sequelae]
  - Constipation [Recovered/Resolved with Sequelae]
  - Large intestinal obstruction [Recovered/Resolved with Sequelae]

NARRATIVE: CASE EVENT DATE: 20180601
